FAERS Safety Report 5200029-X (Version None)
Quarter: 2007Q1

REPORT INFORMATION
  Report Type: 
  Country: None (occurrence: None)
  Receive Date: 20070103
  Receipt Date: 20061219
  Transmission Date: 20070707
  Serious: Yes (Death, Life-Threatening, Hospitalization)
  Sender: FDA-Public Use
  Company Number: 30627

PATIENT
  Age: 30 Year
  Sex: Female

DRUGS (4)
  1. FLECAINIDE ACETATE(FLECAINIDE ACETATE) (4 MG, TABLETS) [Suspect]
     Indication: DRUG USE FOR UNKNOWN INDICATION
     Dosage: (4 + 100 GM, 1 TOTAL), ORAL - SEE IMAGE
     Route: 048
     Dates: start: 20061120, end: 20061120
  2. FLECAINIDE ACETATE(FLECAINIDE ACETATE) (4 MG, TABLETS) [Suspect]
     Indication: INTENTIONAL OVERDOSE
     Dosage: (4 + 100 GM, 1 TOTAL), ORAL - SEE IMAGE
     Route: 048
     Dates: start: 20061120, end: 20061120
  3. OXYCODONE HCL [Concomitant]
  4. INSULIN [Concomitant]

REACTIONS (7)
  - HYPOAESTHESIA [None]
  - HYPOTENSION [None]
  - INTENTIONAL OVERDOSE [None]
  - PARAESTHESIA [None]
  - TORSADE DE POINTES [None]
  - VENTRICULAR TACHYCARDIA [None]
  - VOMITING [None]
